FAERS Safety Report 8489335-3 (Version None)
Quarter: 2012Q3

REPORT INFORMATION
  Report Type: 
  Country: None (occurrence: None)
  Receive Date: 20120705
  Receipt Date: 20120629
  Transmission Date: 20120928
  Serious: No
  Sender: FDA-Public Use
  Company Number: US-PFIZER INC-2012157476

PATIENT

DRUGS (5)
  1. TETRACYCLINE HYDROCHLORIDE [Suspect]
     Dosage: UNK
  2. TETANUS ANTITOXIN [Suspect]
     Dosage: UNK
  3. POTASSIUM PENICILLIN G [Suspect]
     Dosage: UNK
  4. AMOXICILLIN [Suspect]
     Dosage: UNK
  5. KEFLEX [Suspect]
     Dosage: UNK

REACTIONS (1)
  - DRUG HYPERSENSITIVITY [None]
